FAERS Safety Report 14324618 (Version 1)
Quarter: 2017Q4

REPORT INFORMATION
  Report Type: Spontaneous
  Country: US (occurrence: US)
  Receive Date: 20171226
  Receipt Date: 20171226
  Transmission Date: 20180321
  Serious: Yes (Disabling)
  Sender: FDA-Public Use
  Company Number: None

PATIENT
  Age: 60 Year
  Sex: Male
  Weight: 81.65 kg

DRUGS (11)
  1. PRAMIPEROLE [Concomitant]
  2. SYMBICORT [Concomitant]
     Active Substance: BUDESONIDE\FORMOTEROL FUMARATE DIHYDRATE
  3. IBUPROFEN. [Concomitant]
     Active Substance: IBUPROFEN
  4. LISINOPRIL. [Concomitant]
     Active Substance: LISINOPRIL
  5. SINGULAIR [Suspect]
     Active Substance: MONTELUKAST SODIUM
     Indication: ASTHMA
     Dosage: 1 PILL
     Route: 048
     Dates: start: 20110811
  6. COLASE [Concomitant]
  7. ACETAMINOPHEN. [Concomitant]
     Active Substance: ACETAMINOPHEN
  8. INDOMETHACIN. [Concomitant]
     Active Substance: INDOMETHACIN
  9. OXYCODONE [Concomitant]
     Active Substance: OXYCODONE
  10. DIVALPROEX [Concomitant]
     Active Substance: DIVALPROEX SODIUM
  11. NEUROPATHY MEDICATIONS [Concomitant]
     Active Substance: UNSPECIFIED INGREDIENT

REACTIONS (8)
  - Increased viscosity of upper respiratory secretion [None]
  - Pain in extremity [None]
  - Rash [None]
  - Tremor [None]
  - Nausea [None]
  - Blister [None]
  - Swelling [None]
  - Vomiting [None]

NARRATIVE: CASE EVENT DATE: 2012
